FAERS Safety Report 15724026 (Version 1)
Quarter: 2018Q4

REPORT INFORMATION
  Report Type: Spontaneous
  Country: US (occurrence: US)
  Receive Date: 20181214
  Receipt Date: 20181214
  Transmission Date: 20190205
  Serious: Yes (Other)
  Sender: FDA-Public Use
  Company Number: US-AKORN PHARMACEUTICALS-2018AKN01956

PATIENT
  Age: 14 Year
  Sex: Male

DRUGS (2)
  1. MYORISAN [Suspect]
     Active Substance: ISOTRETINOIN
     Indication: ACNE CYSTIC
     Dosage: 40 MG, 1X/DAY
     Route: 048
     Dates: start: 201810, end: 20181129
  2. ST. JOHN^S WART [Concomitant]

REACTIONS (2)
  - Off label use [Recovered/Resolved]
  - Depressive symptom [Unknown]

NARRATIVE: CASE EVENT DATE: 201810
